FAERS Safety Report 6468755-2 (Version None)
Quarter: 2009Q4

REPORT INFORMATION
  Report Type: 
  Country: None (occurrence: None)
  Receive Date: 20091202
  Receipt Date: 20091202
  Transmission Date: 20100525
  Serious: Yes (Hospitalization)
  Sender: FDA-Public Use
  Company Number: None

PATIENT
  Age: 57 Year
  Sex: Male
  Weight: 121 kg

DRUGS (3)
  1. LITHIUM CARBONATE [Suspect]
     Indication: BIPOLAR I DISORDER
     Dates: start: 20080808, end: 20091116
  2. FUROSEMIDE [Suspect]
     Indication: CARDIAC FAILURE CONGESTIVE
     Dates: start: 20091027, end: 20091116
  3. CLOPIDOGREL [Suspect]

REACTIONS (12)
  - ASTHENIA [None]
  - CONFUSIONAL STATE [None]
  - CONTRAST MEDIA REACTION [None]
  - DIZZINESS [None]
  - DYSPHAGIA [None]
  - GAIT DISTURBANCE [None]
  - NAUSEA [None]
  - NEPHROPATHY [None]
  - RENAL FAILURE ACUTE [None]
  - THERAPEUTIC AGENT TOXICITY [None]
  - TREMOR [None]
  - VOMITING [None]
